FAERS Safety Report 11351106 (Version 1)
Quarter: 2015Q3

REPORT INFORMATION
  Report Type: Spontaneous
  Country: US (occurrence: US)
  Receive Date: 20150807
  Receipt Date: 20150807
  Transmission Date: 20151125
  Serious: No
  Sender: FDA-Public Use
  Company Number: US-JNJFOC-20141102941

PATIENT
  Age: 37 Year
  Sex: Male
  Weight: 55.79 kg

DRUGS (2)
  1. WOMENS ROGAINE [Suspect]
     Active Substance: MINOXIDIL
     Indication: PRODUCT USE ISSUE
     Dosage: 1/3 OF THE ML
     Route: 061
     Dates: start: 20141022
  2. WOMENS ROGAINE [Suspect]
     Active Substance: MINOXIDIL
     Route: 061

REACTIONS (2)
  - Wrong patient received medication [Unknown]
  - Product use issue [Unknown]

NARRATIVE: CASE EVENT DATE: 20141022
